FAERS Safety Report 4617387-7 (Version None)
Quarter: 2005Q1

REPORT INFORMATION
  Report Type: 
  Country: None (occurrence: None)
  Receive Date: 20050323
  Receipt Date: 20050314
  Transmission Date: 20050727
  Serious: Yes (Hospitalization)
  Sender: FDA-Public Use
  Company Number: DE-ABBOTT-05P-062-0293905-00

PATIENT
  Age: 58 Year
  Sex: Female

DRUGS (4)
  1. ERGENYL CHRONO TABLETS [Suspect]
     Indication: SCHIZOAFFECTIVE DISORDER
     Route: 048
     Dates: start: 19991022, end: 19991027
  2. MIRTAZAPINE [Suspect]
     Indication: SCHIZOAFFECTIVE DISORDER
     Route: 048
     Dates: start: 19991012, end: 19991027
  3. PROTHIPENDYL HYDROCHLORIDE [Suspect]
     Indication: SCHIZOAFFECTIVE DISORDER
     Route: 048
     Dates: start: 19990825, end: 19991009
  4. LORAZEPAM [Concomitant]
     Indication: SCHIZOAFFECTIVE DISORDER
     Route: 048
     Dates: start: 19990825, end: 19991019

REACTIONS (2)
  - EYELID OEDEMA [None]
  - PANCREATIC DISORDER [None]
